FAERS Safety Report 8400794-4 (Version None)
Quarter: 2012Q2

REPORT INFORMATION
  Report Type: 
  Country: None (occurrence: None)
  Receive Date: 20120531
  Receipt Date: 20120525
  Transmission Date: 20120825
  Serious: No
  Sender: FDA-Public Use
  Company Number: US-TEVA-340468USA

PATIENT
  Sex: Female
  Weight: 61.29 kg

DRUGS (5)
  1. ZOFRAN [Concomitant]
     Indication: NAUSEA
     Dosage: UNKNOWN
  2. COPAXONE [Suspect]
     Indication: MULTIPLE SCLEROSIS
     Dosage: 20 MILLIGRAM;
     Route: 058
  3. PROMETHAZINE [Concomitant]
     Indication: NAUSEA
     Dosage: UNKNOWN
  4. PRILOSEC [Concomitant]
     Indication: NAUSEA
     Dosage: UNKNOWN
  5. PAIN PATCH [Concomitant]
     Indication: SURGERY
     Dosage: UNKNOWN

REACTIONS (1)
  - NAUSEA [None]
